FAERS Safety Report 12675604 (Version 3)
Quarter: 2016Q3

REPORT INFORMATION
  Report Type: Report from Study
  Country: US (occurrence: US)
  Receive Date: 20160823
  Receipt Date: 20160830
  Transmission Date: 20161109
  Serious: Yes (Death, Other)
  Sender: FDA-Public Use
  Company Number: US-BRISTOL-MYERS SQUIBB COMPANY-BMS-2016-068087

PATIENT
  Sex: Female

DRUGS (1)
  1. NIVOLUMAB [Suspect]
     Active Substance: NIVOLUMAB
     Indication: BREAST CANCER
     Dosage: 184 MG, UNK
     Route: 042
     Dates: start: 20160728

REACTIONS (6)
  - Respiratory failure [Unknown]
  - Pneumonia [Unknown]
  - Lymphadenopathy [Unknown]
  - Pleural effusion [Unknown]
  - Product use issue [Unknown]
  - Malignant neoplasm progression [Fatal]
